FAERS Safety Report 18161570 (Version 4)
Quarter: 2020Q3

REPORT INFORMATION
  Report Type: Report from Study
  Country: DK (occurrence: DK)
  Receive Date: 20200818
  Receipt Date: 20200914
  Transmission Date: 20201105
  Serious: Yes (Other)
  Sender: FDA-Public Use
  Company Number: DK-ROCHE-2644705

PATIENT
  Age: 54 Year
  Sex: Female
  Weight: 98 kg

DRUGS (23)
  1. PREDNISOLON [Concomitant]
     Active Substance: PREDNISOLONE
     Route: 048
     Dates: start: 20200801, end: 20200802
  2. ATEZOLIZUMAB. [Suspect]
     Active Substance: ATEZOLIZUMAB
     Indication: TRIPLE NEGATIVE BREAST CANCER
     Dosage: ON THE SAME DAY AT 10:10, SHE RECEIVED MOST RECENT DOSE OF ATEZOLIZUMAB PRIOR TO EVENT ONSET.?DATE O
     Route: 041
     Dates: start: 20200703
  3. PACLITAXEL. [Suspect]
     Active Substance: PACLITAXEL
     Indication: TRIPLE NEGATIVE BREAST CANCER
     Dosage: ON THE SAME DAY AT 12:25, SHE RECEIVED MOST RECENT DOSE (80 MG/M2) OF PACLITAXEL PRIOR TO EVENT ONSE
     Route: 042
     Dates: start: 20200703
  4. LOPERAMID [Concomitant]
     Active Substance: LOPERAMIDE
     Route: 048
     Dates: start: 20200731
  5. LEVOTHYROXINNATRIUM [Concomitant]
     Indication: HYPOTHYROIDISM
     Route: 048
     Dates: start: 20030326
  6. SOLU?MEDROL [Concomitant]
     Active Substance: METHYLPREDNISOLONE SODIUM SUCCINATE
     Indication: PROPHYLAXIS
     Route: 042
     Dates: start: 20200703, end: 20200703
  7. TAVEGYL [Concomitant]
     Active Substance: CLEMASTINE FUMARATE
     Indication: PROPHYLAXIS
     Route: 042
     Dates: start: 20200703, end: 20200703
  8. CETIRIZIN [Concomitant]
     Active Substance: CETIRIZINE HYDROCHLORIDE
     Indication: PROPHYLAXIS
     Route: 048
     Dates: start: 20200703, end: 20200710
  9. LOPERAMID [Concomitant]
     Active Substance: LOPERAMIDE
     Route: 048
     Dates: start: 20200731, end: 20200803
  10. METOPIMAZINE [Concomitant]
     Active Substance: METOPIMAZINE
     Indication: PROPHYLAXIS
     Route: 048
     Dates: start: 20200703
  11. CETIRIZIN [Concomitant]
     Active Substance: CETIRIZINE HYDROCHLORIDE
     Route: 048
     Dates: start: 20200711
  12. PREDNISOLON [Concomitant]
     Active Substance: PREDNISOLONE
     Indication: PROPHYLAXIS
     Route: 048
     Dates: start: 20200704, end: 20200707
  13. PREDNISOLON [Concomitant]
     Active Substance: PREDNISOLONE
     Route: 048
     Dates: start: 20200731, end: 20200731
  14. BRENTACORT [Concomitant]
     Active Substance: HYDROCORTISONE\MICONAZOLE NITRATE
     Indication: RASH
     Dosage: 30 OTHER
     Route: 061
     Dates: start: 20200430, end: 20200617
  15. LOPERAMID [Concomitant]
     Active Substance: LOPERAMIDE
     Indication: PROPHYLAXIS
     Route: 048
     Dates: start: 20200703, end: 20200705
  16. LOPERAMID [Concomitant]
     Active Substance: LOPERAMIDE
     Route: 048
     Dates: start: 20200708, end: 20200717
  17. PARACETAMOL [Concomitant]
     Active Substance: ACETAMINOPHEN
     Indication: MYALGIA
  18. IPATASERTIB. [Suspect]
     Active Substance: IPATASERTIB
     Indication: TRIPLE NEGATIVE BREAST CANCER
     Dosage: ON 13/JUL/2020, SHE RECEIVED IPATASERTIB.?DATE OF MOST RECENT DOSE (400 MG) OF  IPATASERTIB PRIOR TO
     Route: 048
     Dates: start: 20200703
  19. SOLU?MEDROL [Concomitant]
     Active Substance: METHYLPREDNISOLONE SODIUM SUCCINATE
     Route: 042
     Dates: start: 20200710, end: 20200710
  20. LOSARTAN. [Concomitant]
     Active Substance: LOSARTAN
     Indication: HYPERTENSION
     Route: 048
     Dates: start: 20151215
  21. PARACETAMOL [Concomitant]
     Active Substance: ACETAMINOPHEN
     Indication: ARTHRALGIA
     Route: 048
  22. BRENTAN (DENMARK) [Concomitant]
     Indication: PROPHYLAXIS
     Route: 048
     Dates: start: 20200621, end: 20200717
  23. SOLU?MEDROL [Concomitant]
     Active Substance: METHYLPREDNISOLONE SODIUM SUCCINATE
     Route: 042
     Dates: start: 20200731, end: 20200731

REACTIONS (2)
  - Eczema [Recovered/Resolved]
  - Urticaria [Recovered/Resolved]

NARRATIVE: CASE EVENT DATE: 20200713
